FAERS Safety Report 10083247 (Version 1)
Quarter: 2014Q2

REPORT INFORMATION
  Report Type: Spontaneous
  Country: BG (occurrence: BG)
  Receive Date: 20140417
  Receipt Date: 20140417
  Transmission Date: 20141212
  Serious: Yes (Hospitalization, Other)
  Sender: FDA-Public Use
  Company Number: BG-ASTRAZENECA-2014SE25200

PATIENT
  Sex: Male

DRUGS (2)
  1. BRILIQUE [Suspect]
     Indication: ACUTE CORONARY SYNDROME
     Route: 048
     Dates: start: 20140218
  2. ASA [Concomitant]

REACTIONS (3)
  - Thrombosis in device [Unknown]
  - Therapy cessation [Unknown]
  - Gastric haemorrhage [Recovered/Resolved]
